FAERS Safety Report 10599917 (Version 2)
Quarter: 2014Q4

REPORT INFORMATION
  Report Type: Spontaneous
  Country: US (occurrence: US)
  Receive Date: 20141121
  Receipt Date: 20141205
  Transmission Date: 20150529
  Serious: Yes (Hospitalization, Other)
  Sender: FDA-Public Use
  Company Number: US-ACTELION-A-US2014-108181

PATIENT
  Age: 55 Year
  Sex: Female

DRUGS (8)
  1. WARFARIN [Concomitant]
     Active Substance: WARFARIN
  2. REVATIO [Concomitant]
     Active Substance: SILDENAFIL CITRATE
  3. OXYGEN. [Concomitant]
     Active Substance: OXYGEN
  4. DIGOXIN. [Concomitant]
     Active Substance: DIGOXIN
     Dosage: 250 MCG, QD
     Route: 048
  5. PROCARDIA [Concomitant]
     Active Substance: NIFEDIPINE
  6. VELETRI [Suspect]
     Active Substance: EPOPROSTENOL
     Indication: PULMONARY HYPERTENSION
     Dosage: 50 NG/KG, PER MIN
     Route: 042
     Dates: start: 20110614
  7. LASIX [Concomitant]
     Active Substance: FUROSEMIDE
     Dosage: 80 MG, QD
     Route: 048
  8. CELLCEPT [Concomitant]
     Active Substance: MYCOPHENOLATE MOFETIL\MYCOPHENOLATE MOFETIL HYDROCHLORIDE
     Dosage: 1000 MG, Q12HRS
     Route: 048

REACTIONS (7)
  - Vitamin D deficiency [Unknown]
  - Oesophagogastric fundoplasty [Recovered/Resolved]
  - Hypoxia [Unknown]
  - Benign neoplasm of thyroid gland [Unknown]
  - Infection [Unknown]
  - Gastrooesophageal reflux disease [Unknown]
  - Dyspepsia [Unknown]

NARRATIVE: CASE EVENT DATE: 20141028
